FAERS Safety Report 9344227 (Version 1)
Quarter: 2013Q2

REPORT INFORMATION
  Report Type: Spontaneous
  Country: FR (occurrence: FR)
  Receive Date: 20130612
  Receipt Date: 20130612
  Transmission Date: 20140414
  Serious: Yes (Hospitalization)
  Sender: FDA-Public Use
  Company Number: FR-ASTRAZENECA-2013SE40527

PATIENT
  Age: 28112 Day
  Sex: Male

DRUGS (11)
  1. ZESTRIL [Suspect]
     Indication: CARDIAC FAILURE
     Route: 048
     Dates: start: 2012, end: 20120530
  2. ALDACTONE [Suspect]
     Indication: CARDIAC FAILURE
     Route: 048
     Dates: start: 20120503, end: 20120530
  3. ALDACTONE [Suspect]
     Indication: CARDIAC FAILURE
     Route: 048
     Dates: start: 20130604
  4. LASILIX [Suspect]
     Indication: OEDEMA PERIPHERAL
     Route: 048
     Dates: start: 20120503, end: 20120530
  5. LASILIX [Suspect]
     Indication: OEDEMA PERIPHERAL
     Route: 048
     Dates: start: 20130604
  6. BECLOMETASONE [Concomitant]
     Dosage: 250 MICROGRAMS PER DOSE 1 PUFF MORNING AND EVENING
  7. DIGOXINE [Concomitant]
     Indication: ATRIAL FIBRILLATION
     Dates: end: 20130530
  8. PREVISCAN [Concomitant]
     Indication: ATRIAL FIBRILLATION
     Dosage: 3/4 TABLET PER DAY
  9. SPIRIVA [Concomitant]
     Dosage: 1 PUFF DAILY
  10. CHONDROSULF [Concomitant]
     Dosage: 1 PUFF DAILY
  11. ALFUZOSINE [Concomitant]

REACTIONS (4)
  - Right ventricular failure [Unknown]
  - Chronic obstructive pulmonary disease [Unknown]
  - Renal failure acute [Recovered/Resolved]
  - Bundle branch block left [Unknown]
